FAERS Safety Report 9746098 (Version 2)
Quarter: 2013Q4

REPORT INFORMATION
  Report Type: Spontaneous
  Country: US (occurrence: US)
  Receive Date: 20131211
  Receipt Date: 20131211
  Transmission Date: 20140711
  Serious: Yes (Other)
  Sender: FDA-Public Use
  Company Number: US-BMSGILMSD-2009-0023596

PATIENT
  Age: 49 Year
  Sex: Male
  Weight: 81.65 kg

DRUGS (1)
  1. ATRIPLA [Suspect]
     Indication: ACQUIRED IMMUNODEFICIENCY SYNDROME
     Dates: start: 20090722, end: 20090820

REACTIONS (5)
  - Hallucination [Unknown]
  - Drug screen positive [Unknown]
  - Hypoaesthesia oral [Recovered/Resolved]
  - Psychomotor hyperactivity [Recovered/Resolved]
  - Dizziness [Unknown]
